FAERS Safety Report 25117662 (Version 1)
Quarter: 2025Q1

REPORT INFORMATION
  Report Type: Spontaneous
  Country: US (occurrence: US)
  Receive Date: 20250325
  Receipt Date: 20250325
  Transmission Date: 20250409
  Serious: Yes (Life-Threatening, Hospitalization, Other)
  Sender: RANBAXY
  Company Number: US-SUN PHARMACEUTICAL INDUSTRIES LTD-2025R1-500265

PATIENT
  Age: 56 Year
  Sex: Male

DRUGS (1)
  1. DILTIAZEM [Suspect]
     Active Substance: DILTIAZEM
     Indication: Left ventricular failure
     Route: 042

REACTIONS (3)
  - Hypotension [Unknown]
  - Toxicity to various agents [Unknown]
  - Cardiogenic shock [Unknown]
